FAERS Safety Report 4989143-1 (Version None)
Quarter: 2006Q2

REPORT INFORMATION
  Report Type: 
  Country: None (occurrence: None)
  Receive Date: 20060425
  Receipt Date: 20060412
  Transmission Date: 20061013
  Serious: Yes (Hospitalization, Other)
  Sender: FDA-Public Use
  Company Number: 2006051946

PATIENT
  Sex: Female
  Weight: 127.0072 kg

DRUGS (14)
  1. BENADRYL [Suspect]
     Indication: HYPERSENSITIVITY
     Dosage: 25 MG EVERY 4 HOURS; 200-300 MG DAILY, ORAL
     Route: 048
  2. SINEQUAN [Suspect]
     Indication: DEPRESSION
     Dosage: 200 MG DAILY
     Dates: start: 19900101
  3. DOXEPIN HCL [Suspect]
     Indication: DEPRESSION
  4. CHLORPHENAMINE MALEATE (CHLORPHENAMINE MALEATE) [Concomitant]
  5. LORATADINE [Concomitant]
  6. CIMETIDINE [Concomitant]
  7. LEVOTHYROXINE SODIUM [Concomitant]
  8. FLUOXETINE HCL [Concomitant]
  9. AZELASTINE HYDROCHLORIDE (AZELASTINE HYDROCHLORIDE) [Concomitant]
  10. CROMOGLICATE SODIUM (CROMOGLICATE SODIUM) [Concomitant]
  11. FLUTICASONE PROPIONATE [Concomitant]
  12. SALBUTAMOL (SALBUTAMOL) [Concomitant]
  13. BECLOMETHASONE DIPROPIONATE [Concomitant]
  14. EPINEPHRINE [Concomitant]

REACTIONS (5)
  - ANAPHYLACTIC REACTION [None]
  - COMA [None]
  - DRUG LEVEL BELOW THERAPEUTIC [None]
  - EYE SWELLING [None]
  - MALABSORPTION [None]
